FAERS Safety Report 4837233-6 (Version None)
Quarter: 2005Q4

REPORT INFORMATION
  Report Type: 
  Country: None (occurrence: None)
  Receive Date: 20051122
  Receipt Date: 20051101
  Transmission Date: 20060501
  Serious: Yes (Other)
  Sender: FDA-Public Use
  Company Number: USA0509107741

PATIENT
  Age: 43 Year
  Sex: Male
  Weight: 105.5 kg

DRUGS (2)
  1. STRATTERA [Suspect]
     Indication: ATTENTION DEFICIT/HYPERACTIVITY DISORDER
     Dosage: 100 MG DAILY (1/D)
     Dates: start: 20030903, end: 20050711
  2. FORTEMET (METFORMIN HYDROCHLORIDE) [Concomitant]

REACTIONS (14)
  - BACTERIA URINE IDENTIFIED [None]
  - FATIGUE [None]
  - HEADACHE [None]
  - HEPATIC STEATOSIS [None]
  - HEPATOCELLULAR DAMAGE [None]
  - HEPATOTOXICITY [None]
  - MALAISE [None]
  - NITRITE URINE PRESENT [None]
  - PHARYNGOLARYNGEAL PAIN [None]
  - POSTNASAL DRIP [None]
  - PROCEDURAL PAIN [None]
  - SINUSITIS [None]
  - TENDON RUPTURE [None]
  - URINE BILIRUBIN INCREASED [None]
